FAERS Safety Report 5833915-8 (Version None)
Quarter: 2008Q3

REPORT INFORMATION
  Report Type: 
  Country: None (occurrence: None)
  Receive Date: 20080805
  Receipt Date: 20080804
  Transmission Date: 20090109
  Serious: Yes (Death)
  Sender: FDA-Public Use
  Company Number: B0529397A

PATIENT
  Age: 1 Year
  Sex: Male

DRUGS (8)
  1. ALKERAN [Suspect]
     Indication: HEPATOBLASTOMA
     Dosage: 45MG PER DAY
     Route: 042
     Dates: start: 20000226, end: 20000227
  2. VEPESID [Concomitant]
     Indication: HEPATOBLASTOMA
     Dosage: 100MG PER DAY
     Route: 042
     Dates: start: 20000222, end: 20000225
  3. CARBOPLATIN [Concomitant]
     Indication: HEPATOBLASTOMA
     Dosage: 200MG PER DAY
     Route: 042
     Dates: start: 20000222, end: 20000225
  4. GRAN [Concomitant]
     Dosage: 150MCG PER DAY
     Dates: start: 20000304, end: 20000505
  5. ZOVIRAX [Concomitant]
     Dosage: 300MG PER DAY
     Route: 042
     Dates: start: 20000228, end: 20000331
  6. TOBRACIN [Concomitant]
     Indication: INFECTION
     Dosage: 30MG PER DAY
     Dates: start: 20000303, end: 20000417
  7. AZACTAM [Concomitant]
     Indication: INFECTION
     Dosage: 1000MG PER DAY
     Dates: start: 20000303, end: 20000502
  8. PENTCILLIN [Concomitant]
     Indication: INFECTION
     Dosage: 1000MG PER DAY
     Dates: start: 20000303, end: 20000502

REACTIONS (3)
  - CYSTITIS HAEMORRHAGIC [None]
  - DISEASE PROGRESSION [None]
  - HAEMATURIA [None]
